FAERS Safety Report 13035536 (Version 1)
Quarter: 2016Q4

REPORT INFORMATION
  Report Type: Spontaneous
  Country: GB (occurrence: GB)
  Receive Date: 20161216
  Receipt Date: 20161216
  Transmission Date: 20170207
  Serious: Yes (Other)
  Sender: FDA-Public Use
  Company Number: GB-009507513-1612GBR004653

PATIENT
  Sex: Female

DRUGS (1)
  1. ZISPIN SOLTAB [Suspect]
     Active Substance: MIRTAZAPINE
     Route: 048

REACTIONS (3)
  - Oesophagectomy [Unknown]
  - Circumstance or information capable of leading to medication error [Unknown]
  - Incorrect route of drug administration [Unknown]
